FAERS Safety Report 8615685-3 (Version None)
Quarter: 2012Q3

REPORT INFORMATION
  Report Type: 
  Country: None (occurrence: None)
  Receive Date: 20120823
  Receipt Date: 20120813
  Transmission Date: 20120928
  Serious: Yes (Hospitalization)
  Sender: FDA-Public Use
  Company Number: US-ELI_LILLY_AND_COMPANY-US201111002963

PATIENT
  Sex: Female

DRUGS (4)
  1. PROTONIX [Concomitant]
     Indication: DYSPEPSIA
     Dosage: UNK
  2. FORTEO [Suspect]
     Indication: OSTEOPOROSIS
     Dosage: 20 UG, QD
     Dates: start: 20111024
  3. FORTEO [Suspect]
     Dosage: 20 UG, QD
  4. ANTIHYPERTENSIVES [Concomitant]
     Dosage: UNK

REACTIONS (5)
  - INJECTION SITE DISCOLOURATION [None]
  - INJECTION SITE HAEMATOMA [None]
  - SKIN LESION [None]
  - INJECTION SITE STREAKING [None]
  - CORONARY ARTERY DISEASE [None]
